FAERS Safety Report 10775551 (Version 1)
Quarter: 2015Q1

REPORT INFORMATION
  Report Type: Report from Study
  Country: US (occurrence: None)
  Receive Date: 20150205
  Receipt Date: 20150205
  Transmission Date: 20150721
  Serious: Yes (Hospitalization, Other)
  Sender: FDA-Public Use
  Company Number: B0933866A

PATIENT
  Age: 55 Year
  Sex: Male
  Weight: 73.6 kg

DRUGS (22)
  1. LEVOTHYROXINE [Concomitant]
     Active Substance: LEVOTHYROXINE
  2. POTASSIUM [Concomitant]
     Active Substance: POTASSIUM
  3. PRAVACHOL [Concomitant]
     Active Substance: PRAVASTATIN SODIUM
  4. LEXAPRO [Concomitant]
     Active Substance: ESCITALOPRAM OXALATE
  5. VITAMIN D [Concomitant]
     Active Substance: CHOLECALCIFEROL
  6. REMERON [Concomitant]
     Active Substance: MIRTAZAPINE
  7. OMEPRAZOLE. [Concomitant]
     Active Substance: OMEPRAZOLE
  8. CALCIUM CARBONATE. [Concomitant]
     Active Substance: CALCIUM CARBONATE
  9. MELOXICAM. [Concomitant]
     Active Substance: MELOXICAM
  10. LIDODERM [Concomitant]
     Active Substance: LIDOCAINE
  11. DEPO-TESTOSTERONE (TESTOSTERONE CIPIONATE) [Concomitant]
  12. COMBIVENT INHALER (IPRATROPIUM BROMIDE SALBUTAMOL SULFATE) [Concomitant]
  13. RALTEGRAVIR [Concomitant]
     Active Substance: RALTEGRAVIR
  14. CLONIDINE. [Concomitant]
     Active Substance: CLONIDINE
  15. TESSALON PERLES (BENZONATATE) [Concomitant]
  16. AMITRIPTYLINE [Concomitant]
     Active Substance: AMITRIPTYLINE
  17. FIORICET (BUTALBITAL CAFFEINE PARACETAMOL) [Concomitant]
  18. MARAVIROC (MARAVIROC) [Suspect]
     Active Substance: MARAVIROC
     Indication: HIV INFECTION
     Route: 048
     Dates: start: 20110111
  19. CIALIS [Concomitant]
     Active Substance: TADALAFIL
  20. ACETAMINOPHEN (PARACETAMOL) [Concomitant]
     Active Substance: ACETAMINOPHEN
  21. TUSSIONEX PENNKINETIC [Concomitant]
     Active Substance: CHLORPHENIRAMINE\HYDROCODONE
  22. LASIX [Concomitant]
     Active Substance: FUROSEMIDE

REACTIONS (1)
  - Acute myocardial infarction [None]

NARRATIVE: CASE EVENT DATE: 20131002
